FAERS Safety Report 23999212 (Version 1)
Quarter: 2024Q2

REPORT INFORMATION
  Report Type: Report from Study
  Country: JP (occurrence: JP)
  Receive Date: 20240621
  Receipt Date: 20240621
  Transmission Date: 20240715
  Serious: Yes (Hospitalization)
  Sender: FDA-Public Use
  Company Number: JP-KISSEI-TV20240467_P_1

PATIENT
  Age: 81 Year
  Sex: Male
  Weight: 74.4 kg

DRUGS (15)
  1. AVACOPAN [Suspect]
     Active Substance: AVACOPAN
     Indication: Granulomatosis with polyangiitis
     Dosage: BID
     Route: 048
     Dates: start: 20221116, end: 20230202
  2. PREDNISOLONE [Suspect]
     Active Substance: PREDNISOLONE
     Indication: Granulomatosis with polyangiitis
     Dosage: PERORAL MEDICINE
     Route: 048
  3. PREDNISOLONE [Suspect]
     Active Substance: PREDNISOLONE
     Dosage: PERORAL MEDICINE
     Route: 048
     Dates: end: 20221124
  4. PREDNISOLONE [Suspect]
     Active Substance: PREDNISOLONE
     Dosage: PERORAL MEDICINE
     Route: 048
     Dates: start: 20221125, end: 20221201
  5. PREDNISOLONE [Suspect]
     Active Substance: PREDNISOLONE
     Dosage: PERORAL MEDICINE
     Route: 048
     Dates: start: 20221202, end: 20221208
  6. PREDNISOLONE [Suspect]
     Active Substance: PREDNISOLONE
     Dosage: PERORAL MEDICINE
     Route: 048
     Dates: start: 20221209, end: 20221213
  7. PREDNISOLONE [Suspect]
     Active Substance: PREDNISOLONE
     Dosage: PERORAL MEDICINE
     Route: 048
     Dates: start: 20221214, end: 20221225
  8. PREDNISOLONE [Suspect]
     Active Substance: PREDNISOLONE
     Dosage: PERORAL MEDICINE
     Route: 048
     Dates: start: 20221226, end: 20230103
  9. PREDNISOLONE [Suspect]
     Active Substance: PREDNISOLONE
     Dosage: PERORAL MEDICINE
     Route: 048
     Dates: start: 20230104
  10. RITUXIMAB [Concomitant]
     Active Substance: RITUXIMAB
     Indication: Granulomatosis with polyangiitis
     Dosage: UNK
     Route: 040
  11. RITUXIMAB [Concomitant]
     Active Substance: RITUXIMAB
     Dosage: 680 MILLIGRAM
     Route: 040
     Dates: start: 20221116, end: 20221116
  12. RITUXIMAB [Concomitant]
     Active Substance: RITUXIMAB
     Dosage: 680 MILLIGRAM
     Route: 040
     Dates: start: 20221124, end: 20221124
  13. RITUXIMAB [Concomitant]
     Active Substance: RITUXIMAB
     Dosage: 680 MILLIGRAM
     Route: 040
     Dates: start: 20221202, end: 20221202
  14. RITUXIMAB [Concomitant]
     Active Substance: RITUXIMAB
     Dosage: 680 MILLIGRAM
     Route: 040
     Dates: start: 20221209, end: 20221209
  15. LANSOPRAZOLE [Concomitant]
     Active Substance: LANSOPRAZOLE
     Indication: Product used for unknown indication
     Dosage: PERORAL MEDICINE
     Route: 048

REACTIONS (1)
  - Pneumocystis jirovecii pneumonia [Recovered/Resolved]

NARRATIVE: CASE EVENT DATE: 20230202
